FAERS Safety Report 4353035-1 (Version None)
Quarter: 2004Q2

REPORT INFORMATION
  Report Type: 
  Country: None (occurrence: None)
  Receive Date: 20040429
  Receipt Date: 20040416
  Transmission Date: 20050107
  Serious: Yes (Life-Threatening)
  Sender: FDA-Public Use
  Company Number: S04-FRA-01862-01

PATIENT
  Age: 48 Year
  Sex: Female

DRUGS (6)
  1. CITALOPRAM HYDROBROMIDE [Suspect]
     Indication: DEPRESSION
     Dosage: 20 MG QD IV
     Route: 042
     Dates: start: 20040225, end: 20040226
  2. CITALOPRAM HYDROBROMIDE [Suspect]
     Indication: DEPRESSION
     Dosage: 40 MG QD IV
     Route: 042
     Dates: start: 20040227, end: 20040309
  3. MEPROBAMATE+ACEPROMETAZINE (MEPRONIZINE+MEPROBAMATE) [Suspect]
  4. THERALENE (ALIMEMAZINE TARTRATE) [Concomitant]
  5. XANAX [Suspect]
  6. MORPHINE SULFATE [Suspect]
     Dosage: 360 MG QD

REACTIONS (7)
  - BLOOD PRESSURE DIASTOLIC INCREASED [None]
  - CARDIO-RESPIRATORY ARREST [None]
  - COMA [None]
  - DRUG INTERACTION [None]
  - MIOSIS [None]
  - MUSCULOSKELETAL STIFFNESS [None]
  - TRISMUS [None]
